FAERS Safety Report 8496512-4 (Version None)
Quarter: 2012Q3

REPORT INFORMATION
  Report Type: 
  Country: None (occurrence: None)
  Receive Date: 20120709
  Receipt Date: 20120702
  Transmission Date: 20120928
  Serious: Yes (Other)
  Sender: FDA-Public Use
  Company Number: US-JNJFOC-20120402258

PATIENT
  Sex: Female
  Weight: 70.31 kg

DRUGS (4)
  1. REMICADE [Suspect]
     Indication: RHEUMATOID ARTHRITIS
     Dosage: 775 MG
     Route: 042
     Dates: start: 20110720
  2. REMICADE [Suspect]
     Dosage: 775 MG
     Route: 042
     Dates: start: 20111214, end: 20111214
  3. ALEVE [Concomitant]
     Indication: RHEUMATOID ARTHRITIS
  4. REMICADE [Suspect]
     Dosage: 775 MG
     Route: 042
     Dates: start: 20070101

REACTIONS (1)
  - OVARIAN CANCER [None]
